FAERS Safety Report 13588015 (Version 3)
Quarter: 2017Q4

REPORT INFORMATION
  Report Type: Report from Study
  Country: GB (occurrence: GB)
  Receive Date: 20170527
  Receipt Date: 20171013
  Transmission Date: 20180320
  Serious: Yes (Death, Hospitalization, Other)
  Sender: FDA-Public Use
  Company Number: GB-AMGEN-GBRSL2017078802

PATIENT
  Age: 81 Year
  Sex: Male

DRUGS (1)
  1. ARANESP [Suspect]
     Active Substance: DARBEPOETIN ALFA
     Indication: PRODUCT USED FOR UNKNOWN INDICATION
     Dosage: 50 MCG, UNK
     Route: 065

REACTIONS (2)
  - Death [Fatal]
  - Renal disorder [Unknown]
